FAERS Safety Report 4287033-3 (Version None)
Quarter: 2004Q1

REPORT INFORMATION
  Report Type: 
  Country: None (occurrence: None)
  Receive Date: 20040204
  Receipt Date: 20040128
  Transmission Date: 20041129
  Serious: Yes (Hospitalization)
  Sender: FDA-Public Use
  Company Number: STA-AE-03-MTX-221

PATIENT
  Age: 48 Year
  Sex: Female

DRUGS (6)
  1. RHEUMATREX [Suspect]
     Indication: RHEUMATOID ARTHRITIS
     Dosage: 2 MG 2X PER 1 WK, ORAL
     Route: 048
     Dates: start: 20030915, end: 20030916
  2. CALCIUM CARBONATE (CALCIUM CARBONATE) [Concomitant]
  3. CYTOTEC [Concomitant]
  4. INDERAL [Concomitant]
  5. EPOGEN [Concomitant]
  6. MOVER (ACTARIT) [Concomitant]

REACTIONS (5)
  - APHTHOUS STOMATITIS [None]
  - PAIN [None]
  - PLATELET COUNT DECREASED [None]
  - PYREXIA [None]
  - WHITE BLOOD CELL COUNT DECREASED [None]
